FAERS Safety Report 9426495 (Version 3)
Quarter: 2013Q4

REPORT INFORMATION
  Report Type: Report from Study
  Country: GR (occurrence: GR)
  Receive Date: 20130730
  Receipt Date: 20131021
  Transmission Date: 20140711
  Serious: Yes (Death, Hospitalization)
  Sender: FDA-Public Use
  Company Number: GR-AMGEN-GRCNI2013053256

PATIENT
  Age: 73 Year
  Sex: Female

DRUGS (10)
  1. DARBEPOETIN ALFA [Suspect]
     Indication: ANAEMIA
     Dosage: UNK UNK, Q2WK
     Route: 058
     Dates: start: 20130417, end: 20130508
  2. METHOTREXATE [Suspect]
     Indication: ANAEMIA
     Dosage: UNK UNK, Q2WK
     Route: 042
     Dates: start: 20130415
  3. VINBLASTIN [Suspect]
     Indication: ANAEMIA
     Dosage: UNK UNK, Q2WK
     Route: 042
     Dates: start: 20130415
  4. ADRIAMYCIN [Suspect]
     Indication: ANAEMIA
     Dosage: UNK UNK, Q2WK
     Route: 042
     Dates: start: 20130415
  5. CISPLATIN [Suspect]
     Indication: ANAEMIA
     Dosage: UNK UNK, Q2WK
     Route: 042
     Dates: start: 20130415
  6. CARBOPLATIN [Concomitant]
     Indication: ANAEMIA
     Dosage: UNK
     Dates: start: 20120713
  7. GEMZAR [Concomitant]
     Indication: ANAEMIA
     Dosage: UNK
     Dates: start: 20120713
  8. VINFLUNINE [Concomitant]
     Indication: ANAEMIA
     Dosage: 450 MG, UNK
     Dates: start: 20121122
  9. PARACETAMOL CODEINE [Concomitant]
     Indication: PAIN
  10. FENTANYL [Concomitant]
     Indication: PAIN
     Route: 062

REACTIONS (1)
  - Upper gastrointestinal haemorrhage [Fatal]
